FAERS Safety Report 5468903-7 (Version None)
Quarter: 2007Q3

REPORT INFORMATION
  Report Type: 
  Country: None (occurrence: None)
  Receive Date: 20070926
  Receipt Date: 20070912
  Transmission Date: 20080115
  Serious: Yes (Other)
  Sender: FDA-Public Use
  Company Number: US-SHR-US-2007-034229

PATIENT

DRUGS (1)
  1. LEUKINE [Suspect]
     Dates: start: 20070701, end: 20070912

REACTIONS (1)
  - BLINDNESS [None]
